FAERS Safety Report 6397397-2 (Version None)
Quarter: 2009Q4

REPORT INFORMATION
  Report Type: 
  Country: None (occurrence: None)
  Receive Date: 20091012
  Receipt Date: 20090930
  Transmission Date: 20100525
  Serious: Yes (Hospitalization)
  Sender: FDA-Public Use
  Company Number: PHHY2009IT42855

PATIENT
  Sex: Female

DRUGS (7)
  1. VOLTAREN [Suspect]
     Dosage: 1 DF, PRN
     Route: 048
     Dates: start: 20080901
  2. TICLID [Suspect]
     Dosage: 250 MG, QD
     Route: 048
     Dates: start: 20050101
  3. MEPRAL [Concomitant]
     Dosage: 20 MG
     Route: 048
  4. ISOPTIN [Concomitant]
     Dosage: 80 MG, UNK
     Route: 048
  5. MODURETIC 5-50 [Concomitant]
     Dosage: 5/50 MG
     Route: 048
  6. NITRODERM [Concomitant]
     Route: 062
  7. CORIXIL [Concomitant]
     Route: 048

REACTIONS (3)
  - DIVERTICULUM [None]
  - HAEMOGLOBIN DECREASED [None]
  - RECTAL HAEMORRHAGE [None]
